FAERS Safety Report 7059557-7 (Version None)
Quarter: 2010Q4

REPORT INFORMATION
  Report Type: 
  Country: None (occurrence: None)
  Receive Date: 20101025
  Receipt Date: 20101012
  Transmission Date: 20110411
  Serious: Yes (Other)
  Sender: FDA-Public Use
  Company Number: PHFR2010GB04766

PATIENT
  Age: 65 Year
  Sex: Male

DRUGS (1)
  1. RIVASTIGMINE [Suspect]
     Indication: DEMENTIA ALZHEIMER'S TYPE

REACTIONS (2)
  - DEPRESSION [None]
  - PSYCHOTIC DISORDER [None]
